FAERS Safety Report 9164382 (Version 2)
Quarter: 2013Q1

REPORT INFORMATION
  Report Type: Spontaneous
  Country: CO (occurrence: None)
  Receive Date: 20130226
  Receipt Date: 20130308
  Transmission Date: 20140127
  Serious: Yes (Other)
  Sender: FDA-Public Use
  Company Number: 2013065147

PATIENT
  Age: 75 Year
  Sex: Female

DRUGS (1)
  1. FRAGMIN (DALTEPARIN SODIUM) SOLUTION FOR INJECTION [Suspect]
     Route: 030
     Dates: start: 20120919

REACTIONS (8)
  - Pulmonary embolism [None]
  - Embolism [None]
  - Blood creatine abnormal [None]
  - Glomerular filtration rate abnormal [None]
  - Renal cell carcinoma [None]
  - Disease recurrence [None]
  - Drug ineffective [None]
  - Incorrect route of drug administration [None]
